FAERS Safety Report 4616149-4 (Version None)
Quarter: 2005Q1

REPORT INFORMATION
  Report Type: 
  Country: None (occurrence: None)
  Receive Date: 20050323
  Receipt Date: 20041220
  Transmission Date: 20050727
  Serious: Yes (Other)
  Sender: FDA-Public Use
  Company Number: AU-BRISTOL-MYERS SQUIBB COMPANY-12828570

PATIENT
  Age: 51 Year
  Sex: Female

DRUGS (2)
  1. ABILIFY [Suspect]
     Indication: PSYCHOTIC DISORDER
  2. EPILIM [Suspect]

REACTIONS (9)
  - DYSPNOEA [None]
  - FATIGUE [None]
  - HALLUCINATION, AUDITORY [None]
  - MENORRHAGIA [None]
  - MUSCULOSKELETAL STIFFNESS [None]
  - NAUSEA [None]
  - PITUITARY TUMOUR [None]
  - PSYCHOTIC DISORDER [None]
  - SOMNOLENCE [None]
